FAERS Safety Report 9674675 (Version 1)
Quarter: 2013Q4

REPORT INFORMATION
  Report Type: Spontaneous
  Country: US (occurrence: None)
  Receive Date: 20131106
  Receipt Date: 20131106
  Transmission Date: 20140711
  Serious: Yes (Disabling)
  Sender: FDA-Public Use
  Company Number: None

PATIENT
  Age: 47 Year
  Sex: Male
  Weight: 97.52 kg

DRUGS (1)
  1. LEVAQUIN [Suspect]
     Indication: ARTHRITIS INFECTIVE
     Dosage: 1 PILL ONCE DAILY TAKEN BY MOUTH
     Route: 048
     Dates: start: 20120628, end: 20120913

REACTIONS (2)
  - Musculoskeletal pain [None]
  - Arthropathy [None]
